FAERS Safety Report 7409059-0 (Version None)
Quarter: 2011Q2

REPORT INFORMATION
  Report Type: 
  Country: None (occurrence: None)
  Receive Date: 20110412
  Receipt Date: 20110405
  Transmission Date: 20111010
  Serious: Yes (Death, Hospitalization, Other)
  Sender: FDA-Public Use
  Company Number: JP-ACTELION-A-JP2008-22885

PATIENT
  Sex: Male
  Weight: 18 kg

DRUGS (18)
  1. POTASSIUM CANRENOATE [Concomitant]
  2. POTASSIUM GLUCONATE TAB [Concomitant]
  3. EPOPROSTENOL SODIUM [Suspect]
  4. SPIRONOLACTONE [Concomitant]
  5. KETOTIFEN FUMARATE [Concomitant]
  6. TRACLEER [Suspect]
     Dosage: 18 MG, BID
     Route: 048
     Dates: start: 20060228, end: 20060306
  7. ANTIBIOTICS-RESISTANT LACTIC ACID BACTERIAE [Concomitant]
  8. TRACLEER [Suspect]
     Dosage: 9 MG, BID
     Route: 048
     Dates: start: 20060216, end: 20060227
  9. TRACLEER [Suspect]
     Dosage: 17.5 MG, BID
     Route: 048
     Dates: start: 20060703, end: 20061018
  10. DOBUTAMINE HCL [Concomitant]
  11. TRACLEER [Suspect]
     Indication: PULMONARY ARTERIAL HYPERTENSION
     Dosage: 27 MG, BID
     Route: 048
     Dates: start: 20060307, end: 20060629
  12. SULTAMICILLIN TOSILATE [Concomitant]
  13. SILDENAFIL CITRATE [Concomitant]
  14. OXYGEN [Concomitant]
  15. CHLORPHENIRAMINE MALEATE [Concomitant]
  16. FUROSEMIDE [Concomitant]
  17. AMLODIPINE BESYLATE [Concomitant]
  18. FERRIC PYROPHOSPHATE [Concomitant]

REACTIONS (15)
  - GENERALISED OEDEMA [None]
  - DISEASE PROGRESSION [None]
  - BRAIN NATRIURETIC PEPTIDE INCREASED [None]
  - HEPATOMEGALY [None]
  - CONCOMITANT DISEASE AGGRAVATED [None]
  - WEIGHT DECREASED [None]
  - CARDIAC FAILURE [None]
  - PULMONARY HYPERTENSION [None]
  - HOT FLUSH [None]
  - DECREASED APPETITE [None]
  - PLEURAL EFFUSION [None]
  - GENERAL PHYSICAL HEALTH DETERIORATION [None]
  - FACE OEDEMA [None]
  - CARDIOMEGALY [None]
  - PERICARDIAL EFFUSION [None]
